FAERS Safety Report 8599513-0 (Version None)
Quarter: 2012Q3

REPORT INFORMATION
  Report Type: 
  Country: None (occurrence: None)
  Receive Date: 20120816
  Receipt Date: 20120702
  Transmission Date: 20120928
  Serious: No
  Sender: FDA-Public Use
  Company Number: US-ALLERGAN-1209141US

PATIENT
  Sex: Female

DRUGS (1)
  1. LASTACAFT [Suspect]
     Indication: EYE ALLERGY
     Dosage: UNK DOSE AND DURATION

REACTIONS (3)
  - EYELID OEDEMA [None]
  - DRUG HYPERSENSITIVITY [None]
  - CONJUNCTIVITIS [None]
